FAERS Safety Report 18298529 (Version 1)
Quarter: 2020Q3

REPORT INFORMATION
  Report Type: Spontaneous
  Country: US (occurrence: US)
  Receive Date: 20200922
  Receipt Date: 20200922
  Transmission Date: 20201103
  Serious: No
  Sender: FDA-Public Use
  Company Number: US-009507513-2009USA003392

PATIENT
  Age: 14 Year
  Sex: Female

DRUGS (6)
  1. CEFTRIAXONE. [Concomitant]
     Active Substance: CEFTRIAXONE
     Indication: EYE INFECTION FUNGAL
  2. NOXAFIL [Suspect]
     Active Substance: POSACONAZOLE
     Indication: FUNGAL RHINITIS
     Route: 042
  3. LIP?AMPHOTERICIN [Concomitant]
     Active Substance: AMPHOTERICIN B
     Indication: FUNGAL RHINITIS
     Dosage: 7.5 MILLIGRAM/KILOGRAM, QD
  4. NOXAFIL [Suspect]
     Active Substance: POSACONAZOLE
     Indication: EYE INFECTION FUNGAL
  5. LIP?AMPHOTERICIN [Concomitant]
     Active Substance: AMPHOTERICIN B
     Indication: EYE INFECTION FUNGAL
  6. CEFTRIAXONE. [Concomitant]
     Active Substance: CEFTRIAXONE
     Indication: FUNGAL RHINITIS
     Route: 042

REACTIONS (1)
  - Product use issue [Unknown]
